FAERS Safety Report 15587279 (Version 2)
Quarter: 2018Q4

REPORT INFORMATION
  Report Type: Report from Study
  Country: None (occurrence: US)
  Receive Date: 20181105
  Receipt Date: 20181109
  Transmission Date: 20190205
  Serious: Yes (Hospitalization, Other)
  Sender: FDA-Public Use
  Company Number: US-ABBVIE-18K-163-2541044-00

PATIENT
  Age: 40 Year
  Sex: Female
  Weight: 111.68 kg

DRUGS (4)
  1. LYRICA [Concomitant]
     Active Substance: PREGABALIN
     Indication: NEURALGIA
  2. TOPAMAX [Concomitant]
     Active Substance: TOPIRAMATE
     Indication: HEADACHE
  3. HUMIRA [Suspect]
     Active Substance: ADALIMUMAB
     Indication: RHEUMATOID ARTHRITIS
     Route: 058
     Dates: start: 2013
  4. CELEBREX [Concomitant]
     Active Substance: CELECOXIB
     Indication: INFLAMMATION

REACTIONS (7)
  - Mass [Recovered/Resolved]
  - Glaucoma [Not Recovered/Not Resolved]
  - Abdominal hernia [Recovered/Resolved]
  - Endometriosis [Recovered/Resolved]
  - Abdominal hernia [Recovered/Resolved]
  - Abdominal neoplasm [Recovered/Resolved]
  - Ovarian cyst [Recovered/Resolved]

NARRATIVE: CASE EVENT DATE: 2014
